FAERS Safety Report 18574942 (Version 1)
Quarter: 2020Q4

REPORT INFORMATION
  Report Type: Spontaneous
  Country: FR (occurrence: FR)
  Receive Date: 20201203
  Receipt Date: 20201203
  Transmission Date: 20210114
  Serious: Yes (Hospitalization)
  Sender: FDA-Public Use
  Company Number: FR-PFIZER INC-2020473884

PATIENT
  Age: 72 Year
  Sex: Female

DRUGS (2)
  1. IBRANCE [Suspect]
     Active Substance: PALBOCICLIB
     Indication: BREAST CANCER
     Dosage: 100 MG, DAILY, 3 WEEKS ON, 1 WEEK OFF
     Route: 048
     Dates: start: 201803
  2. FASLODEX [Suspect]
     Active Substance: FULVESTRANT
     Indication: BREAST CANCER
     Dosage: 250 MG, CYCLIC
     Route: 041
     Dates: start: 201803

REACTIONS (2)
  - Aortic arteriosclerosis [Not Recovered/Not Resolved]
  - Splenic infarction [Not Recovered/Not Resolved]

NARRATIVE: CASE EVENT DATE: 202010
